FAERS Safety Report 8251160-6 (Version None)
Quarter: 2012Q2

REPORT INFORMATION
  Report Type: 
  Country: None (occurrence: None)
  Receive Date: 20120402
  Receipt Date: 20120326
  Transmission Date: 20120825
  Serious: Yes (Hospitalization, Other)
  Sender: FDA-Public Use
  Company Number: US-MERCK-1201USA00987

PATIENT
  Age: 46 Year
  Sex: Female
  Weight: 72 kg

DRUGS (16)
  1. FOSAMAX [Suspect]
     Indication: OSTEOPENIA
     Route: 048
     Dates: start: 19980101, end: 20111001
  2. VITAMINS (UNSPECIFIED) [Concomitant]
     Route: 065
  3. EFFEXOR [Concomitant]
     Indication: MENOPAUSAL SYMPTOMS
     Route: 065
     Dates: start: 19980101
  4. VITAMIN D (UNSPECIFIED) [Concomitant]
     Indication: OSTEOPOROSIS
     Route: 065
  5. CLONIDINE [Concomitant]
     Indication: HOT FLUSH
     Route: 065
     Dates: start: 19980101
  6. VENLAFAXINE HYDROCHLORIDE [Concomitant]
     Indication: MENOPAUSAL SYMPTOMS
     Route: 065
  7. VENLAFAXINE HYDROCHLORIDE [Concomitant]
     Indication: NIGHT SWEATS
     Route: 065
  8. FOSAMAX [Suspect]
     Indication: OSTEOPOROSIS
     Route: 048
     Dates: start: 19980101, end: 20111001
  9. CALCIUM (UNSPECIFIED) AND VITAMIN D (UNSPECIFIED) [Concomitant]
     Indication: OSTEOPOROSIS
     Route: 065
  10. EFFEXOR [Concomitant]
     Indication: HOT FLUSH
     Route: 065
     Dates: start: 19980101
  11. LIPITOR [Concomitant]
     Indication: HYPERCHOLESTEROLAEMIA
     Route: 065
  12. CLONIDINE [Concomitant]
     Indication: MENOPAUSAL SYMPTOMS
     Route: 065
     Dates: start: 19980101
  13. CALCIUM (UNSPECIFIED) [Concomitant]
     Indication: OSTEOPENIA
     Route: 065
  14. FOSAMAX [Suspect]
     Route: 048
  15. FOSAMAX [Suspect]
     Route: 048
  16. HYDROCHLOROTHIAZIDE [Concomitant]
     Indication: HYPERTENSION
     Route: 065

REACTIONS (24)
  - LIVER FUNCTION TEST ABNORMAL [None]
  - BACK PAIN [None]
  - FEMUR FRACTURE [None]
  - SCIATICA [None]
  - LIMB DISCOMFORT [None]
  - ARTHRALGIA [None]
  - CYST [None]
  - FOOT FRACTURE [None]
  - BUNION [None]
  - INTRACRANIAL ANEURYSM [None]
  - TRIGGER FINGER [None]
  - MALAISE [None]
  - BLOOD CALCIUM DECREASED [None]
  - INTERVERTEBRAL DISC DEGENERATION [None]
  - HEADACHE [None]
  - PULMONARY EMBOLISM [None]
  - ADVERSE EVENT [None]
  - NON-CARDIAC CHEST PAIN [None]
  - DIVERTICULUM [None]
  - ARTHRITIS [None]
  - BLOOD PRESSURE DECREASED [None]
  - NERVOUS SYSTEM DISORDER [None]
  - PARAESTHESIA [None]
  - LIMB INJURY [None]
